FAERS Safety Report 5818802-3 (Version None)
Quarter: 2008Q3

REPORT INFORMATION
  Report Type: 
  Country: None (occurrence: None)
  Receive Date: 20080721
  Receipt Date: 20080721
  Transmission Date: 20090109
  Serious: Yes (Other)
  Sender: FDA-Public Use
  Company Number: None

PATIENT
  Age: 79 Year
  Sex: Female
  Weight: 59.4212 kg

DRUGS (1)
  1. DIGOXIN [Suspect]
     Indication: HEART RATE IRREGULAR
     Dosage: ONCE DAILY EACH MORNING
     Dates: start: 20080305, end: 20080703

REACTIONS (3)
  - ARRHYTHMIA [None]
  - FLUID RETENTION [None]
  - HEART RATE DECREASED [None]
